FAERS Safety Report 16850827 (Version 1)
Quarter: 2019Q3

REPORT INFORMATION
  Report Type: Spontaneous
  Country: US (occurrence: US)
  Receive Date: 20190925
  Receipt Date: 20190925
  Transmission Date: 20191005
  Serious: No
  Sender: FDA-Public Use
  Company Number: US-THERAPEUTICSMD-2019TMD01345

PATIENT
  Age: 55 Year
  Sex: Female
  Weight: 68.03 kg

DRUGS (6)
  1. IMVEXXY [Suspect]
     Active Substance: ESTRADIOL
     Indication: VULVOVAGINAL DISCOMFORT
  2. IMVEXXY [Suspect]
     Active Substance: ESTRADIOL
     Indication: ATROPHIC VULVOVAGINITIS
     Dosage: 10 ?G, BEFORE BED, LAYING DOWN AFTERWARDS
     Route: 067
     Dates: start: 20190606, end: 20190606
  3. IMVEXXY [Suspect]
     Active Substance: ESTRADIOL
     Indication: VULVOVAGINAL BURNING SENSATION
  4. IMVEXXY [Suspect]
     Active Substance: ESTRADIOL
     Indication: VULVOVAGINAL DRYNESS
  5. METOPROLOL. [Concomitant]
     Active Substance: METOPROLOL
     Dosage: 25 MG (HALF OF 50 MG TABLET) IN THE MORNING AND NIGHT
     Dates: start: 2014
  6. LISINOPRIL/HCT [Concomitant]
     Dosage: 0.5 TABLETS, 1X/DAY IN THE MORNING

REACTIONS (6)
  - Palpitations [Recovered/Resolved]
  - Dyspnoea [Recovered/Resolved]
  - Feeling jittery [Recovered/Resolved]
  - Dizziness [Recovered/Resolved]
  - Nausea [Recovered/Resolved]
  - Initial insomnia [Recovered/Resolved]

NARRATIVE: CASE EVENT DATE: 20190606
